FAERS Safety Report 23328876 (Version 1)
Quarter: 2023Q4

REPORT INFORMATION
  Report Type: Spontaneous
  Country: JP (occurrence: JP)
  Receive Date: 20231222
  Receipt Date: 20231222
  Transmission Date: 20240110
  Serious: Yes (Other)
  Sender: FDA-Public Use
  Company Number: JP-Merck Healthcare KGaA-2023495354

PATIENT
  Age: 9 Decade
  Sex: Female

DRUGS (3)
  1. METGLUCO [Suspect]
     Active Substance: METFORMIN HYDROCHLORIDE
     Indication: Type 2 diabetes mellitus
     Route: 048
  2. MITIGLINIDE [Suspect]
     Active Substance: MITIGLINIDE
     Indication: Product used for unknown indication
     Route: 048
  3. MIGLITOL [Suspect]
     Active Substance: MIGLITOL
     Indication: Product used for unknown indication

REACTIONS (3)
  - Renal impairment [Unknown]
  - Taste disorder [Unknown]
  - Decreased appetite [Unknown]
